FAERS Safety Report 6807455-3 (Version None)
Quarter: 2010Q2

REPORT INFORMATION
  Report Type: 
  Country: None (occurrence: None)
  Receive Date: 20100625
  Receipt Date: 20100614
  Transmission Date: 20101027
  Serious: Yes (Hospitalization)
  Sender: FDA-Public Use
  Company Number: ACO_01117_2010

PATIENT
  Sex: Male
  Weight: 86.1834 kg

DRUGS (12)
  1. AMPYRA [Suspect]
     Indication: MULTIPLE SCLEROSIS
     Dosage: (10 MG BID ORAL)
     Route: 048
     Dates: start: 20100525
  2. ZANAFLEX [Suspect]
     Indication: DRUG USE FOR UNKNOWN INDICATION
     Dosage: (DF)
  3. TYSABRI [Concomitant]
  4. INDERAL LA [Concomitant]
  5. VESICARE [Concomitant]
  6. REQUIP [Concomitant]
  7. DAILY MULTIVITAMIN [Concomitant]
  8. VITAMIN C /00008001/ [Concomitant]
  9. VERAMYST [Concomitant]
  10. BACLOFEN [Concomitant]
  11. VYTOREN [Concomitant]
  12. TRIMETHOPRIM [Concomitant]

REACTIONS (2)
  - BURSITIS [None]
  - CELLULITIS [None]
